FAERS Safety Report 6793251-2 (Version None)
Quarter: 2010Q2

REPORT INFORMATION
  Report Type: 
  Country: None (occurrence: None)
  Receive Date: 20100624
  Receipt Date: 20091023
  Transmission Date: 20101027
  Serious: Yes (Death)
  Sender: FDA-Public Use
  Company Number: US-MYLANLABS-2009S1017140

PATIENT
  Age: 55 Year
  Sex: Female

DRUGS (7)
  1. CLOZAPINE [Suspect]
     Indication: SCHIZOPHRENIA
     Route: 048
  2. CLOZAPINE [Suspect]
     Route: 048
  3. DILANTIN [Concomitant]
  4. TOPAMAX [Concomitant]
  5. PHENOBARBITAL [Concomitant]
  6. ASPIRIN [Concomitant]
  7. SENNOCOL /00142205/ [Concomitant]

REACTIONS (1)
  - DEATH [None]
